FAERS Safety Report 8836295 (Version 1)
Quarter: 2012Q4

REPORT INFORMATION
  Report Type: 
  Country: US (occurrence: US)
  Receive Date: 20121011
  Receipt Date: 20121011
  Transmission Date: 20130627
  Serious: Yes (Hospitalization, Other)
  Sender: FDA-Public Use
  Company Number: PHHY2012US087420

PATIENT
  Age: 55 Year
  Sex: Male

DRUGS (9)
  1. HYDROCHLOROTHIAZIDE [Suspect]
     Dosage: UNK UKN, UNK
  2. LOVASTATIN [Suspect]
     Dosage: 20 mg, per day
  3. BABY ASPIRIN [Concomitant]
  4. ATENOLOL [Concomitant]
  5. FEXOFENADINE [Concomitant]
  6. FISH OIL [Concomitant]
  7. ACIDOPHILUS [Concomitant]
  8. VITAMIN D [Concomitant]
  9. CALCIUM CARBONATE [Concomitant]

REACTIONS (14)
  - Drug-induced liver injury [Unknown]
  - Autoimmune hepatitis [Unknown]
  - Ocular icterus [Unknown]
  - Chromaturia [Unknown]
  - Nausea [Unknown]
  - Chills [Unknown]
  - Headache [Unknown]
  - Feeling abnormal [Unknown]
  - Pyrexia [Unknown]
  - Malaise [Unknown]
  - Fatigue [Unknown]
  - Hepatic fibrosis [Unknown]
  - Hepatic steatosis [Unknown]
  - Sinus congestion [Unknown]
